FAERS Safety Report 7243838-8 (Version None)
Quarter: 2011Q1

REPORT INFORMATION
  Report Type: 
  Country: None (occurrence: None)
  Receive Date: 20110125
  Receipt Date: 20110124
  Transmission Date: 20110831
  Serious: No
  Sender: FDA-Public Use
  Company Number: US-PFIZER INC-2011016601

PATIENT
  Sex: Female
  Weight: 131.52 kg

DRUGS (2)
  1. VICODIN [Concomitant]
     Indication: BLOOD PRESSURE ABNORMAL
     Dosage: 0.25 MG, 1X/DAY
  2. CHANTIX [Suspect]
     Indication: SMOKING CESSATION THERAPY
     Dosage: 0.5 MG, 1X/DAY
     Route: 048
     Dates: start: 20101001, end: 20101001

REACTIONS (4)
  - HEADACHE [None]
  - CONSTIPATION [None]
  - STRESS [None]
  - HOT FLUSH [None]
